FAERS Safety Report 25368363 (Version 2)
Quarter: 2025Q3

REPORT INFORMATION
  Report Type: Report from Study
  Country: US (occurrence: US)
  Receive Date: 20250528
  Receipt Date: 20250803
  Transmission Date: 20251020
  Serious: Yes (Hospitalization)
  Sender: ALEXION PHARMACEUTICALS
  Company Number: US-ASTRAZENECA-202505USA020208US

PATIENT
  Sex: Female

DRUGS (1)
  1. OSIMERTINIB [Suspect]
     Active Substance: OSIMERTINIB
     Indication: Lung carcinoma cell type unspecified stage 0
     Dosage: 100 MICROGRAM, QD
     Dates: start: 20250510

REACTIONS (5)
  - Syncope [Unknown]
  - Blood glucose decreased [Unknown]
  - Hypotension [Unknown]
  - Urinary tract infection [Unknown]
  - Product dose omission issue [Unknown]
